FAERS Safety Report 18740342 (Version 1)
Quarter: 2021Q1

REPORT INFORMATION
  Report Type: Spontaneous
  Country: US (occurrence: US)
  Receive Date: 20210114
  Receipt Date: 20210114
  Transmission Date: 20210419
  Serious: No
  Sender: FDA-Public Use
  Company Number: US-DEXPHARM-20200980

PATIENT
  Age: 63 Year
  Sex: Female
  Weight: 90.7 kg

DRUGS (2)
  1. OMEPRAZOLE DELAYED RELEASE TABLETS 20 MG [Suspect]
     Active Substance: OMEPRAZOLE
     Indication: DYSPEPSIA
     Dosage: 40 MG QAM, 20 MG QHS
     Route: 048
     Dates: start: 202009, end: 20201016
  2. LANSOPRAZOLE. [Suspect]
     Active Substance: LANSOPRAZOLE

REACTIONS (1)
  - Drug ineffective [Unknown]

NARRATIVE: CASE EVENT DATE: 202010
